FAERS Safety Report 11143612 (Version 1)
Quarter: 2015Q2

REPORT INFORMATION
  Report Type: Spontaneous
  Country: US (occurrence: US)
  Receive Date: 20150526
  Receipt Date: 20150526
  Transmission Date: 20150821
  Serious: Yes (Hospitalization)
  Sender: FDA-Public Use
  Company Number: US-ACCORD-030917

PATIENT
  Age: 56 Year
  Sex: Female

DRUGS (3)
  1. METHOTREXATE [Suspect]
     Active Substance: METHOTREXATE
     Indication: PYODERMA GANGRENOSUM
  2. ADALIMUMAB [Suspect]
     Active Substance: ADALIMUMAB
     Indication: PYODERMA GANGRENOSUM
  3. PREDNISONE. [Suspect]
     Active Substance: PREDNISONE
     Indication: PYODERMA GANGRENOSUM

REACTIONS (2)
  - Pneumocystis jirovecii pneumonia [Unknown]
  - Pneumothorax [Recovered/Resolved]
